FAERS Safety Report 20861882 (Version 6)
Quarter: 2023Q2

REPORT INFORMATION
  Report Type: Report from Study
  Country: HU (occurrence: HU)
  Receive Date: 20220523
  Receipt Date: 20230526
  Transmission Date: 20230722
  Serious: Yes (Hospitalization)
  Sender: FDA-Public Use
  Company Number: HU-GLAXOSMITHKLINE-HU2022GSK079406

PATIENT

DRUGS (5)
  1. DOSTARLIMAB [Suspect]
     Active Substance: DOSTARLIMAB
     Indication: Endometrial cancer
     Dosage: 500 MG, U
     Dates: start: 20220427, end: 20220427
  2. CARBOPLATIN [Suspect]
     Active Substance: CARBOPLATIN
     Indication: Endometrial cancer
     Dosage: 660 MG, U
     Route: 042
     Dates: start: 20220427, end: 20220427
  3. CARBOPLATIN [Suspect]
     Active Substance: CARBOPLATIN
     Dosage: 464 MG
     Route: 042
     Dates: start: 20220427
  4. PACLITAXEL [Suspect]
     Active Substance: PACLITAXEL
     Indication: Endometrial cancer
     Dosage: 175 MG/M2, U
     Route: 042
     Dates: start: 20220427, end: 20220427
  5. PACLITAXEL [Suspect]
     Active Substance: PACLITAXEL
     Dosage: 135 MG/M2
     Route: 042
     Dates: start: 20220524

REACTIONS (2)
  - Tachycardia [Recovered/Resolved]
  - Anaemia [Recovered/Resolved]

NARRATIVE: CASE EVENT DATE: 20220429
